FAERS Safety Report 7933675-0 (Version None)
Quarter: 2011Q4

REPORT INFORMATION
  Report Type: 
  Country: None (occurrence: None)
  Receive Date: 20111122
  Receipt Date: 20111115
  Transmission Date: 20120403
  Serious: Yes (Hospitalization)
  Sender: FDA-Public Use
  Company Number: PHHY2011MX101309

PATIENT
  Age: 69 Year
  Sex: Male

DRUGS (1)
  1. TRILEPTAL [Suspect]
     Indication: EPILEPSY
     Dosage: 300 MG, BID
     Dates: start: 20101001

REACTIONS (5)
  - COMMUNICATION DISORDER [None]
  - MOVEMENT DISORDER [None]
  - CONVULSION [None]
  - CEREBRAL THROMBOSIS [None]
  - MEMORY IMPAIRMENT [None]
